FAERS Safety Report 4628591-6 (Version None)
Quarter: 2005Q2

REPORT INFORMATION
  Report Type: 
  Country: None (occurrence: None)
  Receive Date: 20050404
  Receipt Date: 20050329
  Transmission Date: 20051028
  Serious: Yes (Hospitalization)
  Sender: FDA-Public Use
  Company Number: GR-2005-003448

PATIENT
  Age: 65 Year
  Sex: Female
  Weight: 29.4838 kg

DRUGS (2)
  1. ULTRAVIST 300 [Suspect]
     Indication: COMPUTERISED TOMOGRAM
     Dosage: 80 ML,  1 DOSE, INTRAVENOUS
     Route: 042
     Dates: start: 20050307, end: 20050307
  2. PARACETAMOL [Concomitant]

REACTIONS (1)
  - HYPERSENSITIVITY [None]
